FAERS Safety Report 21703042 (Version 1)
Quarter: 2022Q4

REPORT INFORMATION
  Report Type: Spontaneous
  Country: US (occurrence: US)
  Receive Date: 20221209
  Receipt Date: 20221209
  Transmission Date: 20230112
  Serious: No
  Sender: FDA-Public Use
  Company Number: US-drreddys-SPO/USA/22/0157550

PATIENT
  Age: 21 Year

DRUGS (1)
  1. ZENATANE [Suspect]
     Active Substance: ISOTRETINOIN
     Indication: Acne
     Dosage: RMA ISSUE DATE: 02/APRIL/2022 05:33:13 PM, 07/APRIL/2022 02:52:57 PM, 26/MAY/2022 09:07:16 PM, 30/JU

REACTIONS (1)
  - Adverse drug reaction [Unknown]
